FAERS Safety Report 20185012 (Version 3)
Quarter: 2021Q4

REPORT INFORMATION
  Report Type: Spontaneous
  Country: US (occurrence: US)
  Receive Date: 20211215
  Receipt Date: 20211230
  Transmission Date: 20220303
  Serious: No
  Sender: FDA-Public Use
  Company Number: US-STRONGBRIDGE BIOPHARMA-2021-STR-000409

PATIENT
  Sex: Female

DRUGS (1)
  1. KEVEYIS [Suspect]
     Active Substance: DICHLORPHENAMIDE
     Indication: Myotonia
     Dosage: 50 MG, BID
     Route: 048
     Dates: start: 20210424

REACTIONS (4)
  - Feeling abnormal [Not Recovered/Not Resolved]
  - Paraesthesia oral [Unknown]
  - Fatigue [Unknown]
  - Paraesthesia [Not Recovered/Not Resolved]
